FAERS Safety Report 7600042-9 (Version None)
Quarter: 2011Q3

REPORT INFORMATION
  Report Type: 
  Country: None (occurrence: None)
  Receive Date: 20110711
  Receipt Date: 20110629
  Transmission Date: 20111222
  Serious: Yes (Hospitalization, Other)
  Sender: FDA-Public Use
  Company Number: US-BAYER-2011-025742

PATIENT
  Age: 25 Year
  Sex: Female
  Weight: 74.83 kg

DRUGS (1)
  1. MIRENA [Suspect]
     Dosage: 20 ?G, CONT
     Route: 015
     Dates: start: 20080901

REACTIONS (10)
  - ABDOMINAL PAIN [None]
  - PAIN [None]
  - ECTOPIC PREGNANCY [None]
  - PANIC ATTACK [None]
  - UTERINE PERFORATION [None]
  - PROCEDURAL PAIN [None]
  - ANXIETY [None]
  - INTRA-ABDOMINAL HAEMORRHAGE [None]
  - DEPRESSION [None]
  - INFERTILITY FEMALE [None]
